FAERS Safety Report 6385935-5 (Version None)
Quarter: 2009Q4

REPORT INFORMATION
  Report Type: 
  Country: None (occurrence: None)
  Receive Date: 20091002
  Receipt Date: 20090109
  Transmission Date: 20100525
  Serious: No
  Sender: FDA-Public Use
  Company Number: US-ASTRAZENECA-2009UW00825

PATIENT
  Age: 79 Year
  Sex: Female
  Weight: 70.8 kg

DRUGS (6)
  1. ARIMIDEX [Suspect]
     Indication: BREAST CANCER FEMALE
     Route: 048
  2. ACCUPRIL [Concomitant]
  3. HYDROCHLOROTHIAZIDE [Concomitant]
  4. ASPIRIN [Concomitant]
  5. TRENTOL [Concomitant]
  6. TENEX [Concomitant]

REACTIONS (3)
  - BLOOD URINE PRESENT [None]
  - BONE DENSITY DECREASED [None]
  - MENSTRUATION IRREGULAR [None]
